FAERS Safety Report 21877365 (Version 1)
Quarter: 2023Q1

REPORT INFORMATION
  Report Type: Spontaneous
  Country: US (occurrence: None)
  Receive Date: 20230116
  Receipt Date: 20230116
  Transmission Date: 20230417
  Serious: Yes (Hospitalization)
  Sender: FDA-Public Use
  Company Number: None

PATIENT
  Sex: Female

DRUGS (2)
  1. AMBRISENTAN [Suspect]
     Active Substance: AMBRISENTAN
     Indication: Pulmonary arterial hypertension
     Dosage: 5 MG ORAL?TAKE 1 TABLET BY MOUTH DAILY
     Route: 048
     Dates: start: 20220723
  2. OFEV [Concomitant]
     Active Substance: NINTEDANIB

REACTIONS (2)
  - Hospitalisation [None]
  - Therapy interrupted [None]
